FAERS Safety Report 8335952-0 (Version None)
Quarter: 2012Q2

REPORT INFORMATION
  Report Type: 
  Country: None (occurrence: None)
  Receive Date: 20120504
  Receipt Date: 20120430
  Transmission Date: 20120825
  Serious: No
  Sender: FDA-Public Use
  Company Number: US-PFIZER INC-2012106610

PATIENT
  Sex: Male

DRUGS (2)
  1. NOVOLOG [Concomitant]
     Dosage: UNK
  2. SUTENT [Suspect]
     Indication: METASTATIC RENAL CELL CARCINOMA
     Dosage: 50 MG, UNK
     Dates: start: 20120416

REACTIONS (4)
  - SOMNOLENCE [None]
  - NAUSEA [None]
  - FATIGUE [None]
  - DIARRHOEA [None]
